FAERS Safety Report 6249495-1 (Version None)
Quarter: 2009Q2

REPORT INFORMATION
  Report Type: 
  Country: None (occurrence: None)
  Receive Date: 20090629
  Receipt Date: 20090616
  Transmission Date: 20091009
  Serious: Yes (Hospitalization)
  Sender: FDA-Public Use
  Company Number: B0572886A

PATIENT
  Sex: Male
  Weight: 12 kg

DRUGS (8)
  1. PURINETHOL [Suspect]
     Dosage: 25MG PER DAY
     Route: 048
     Dates: start: 20090327, end: 20090406
  2. ONDANSETRON HCL [Suspect]
     Route: 042
     Dates: start: 20090327, end: 20090327
  3. METHOTREXATE [Suspect]
     Dosage: 2780MG PER DAY
     Route: 042
     Dates: start: 20090327, end: 20090327
  4. VINCRISTINE [Suspect]
     Dosage: .47MG PER DAY
     Route: 042
     Dates: start: 20090327, end: 20090327
  5. CORTANCYL [Suspect]
     Dosage: 20MG PER DAY
     Route: 048
     Dates: start: 20090327, end: 20090403
  6. FOLINIC ACID [Suspect]
     Route: 042
     Dates: start: 20090327, end: 20090330
  7. PLITICAN [Suspect]
     Route: 042
     Dates: start: 20090327, end: 20090327
  8. METHOTREXATE [Suspect]
     Route: 037
     Dates: start: 20090328, end: 20090328

REACTIONS (4)
  - HERPES VIRUS INFECTION [None]
  - MOUTH ULCERATION [None]
  - PYREXIA [None]
  - URTICARIA VESICULOSA [None]
